FAERS Safety Report 7223663-4 (Version None)
Quarter: 2011Q1

REPORT INFORMATION
  Report Type: 
  Country: None (occurrence: None)
  Receive Date: 20110112
  Receipt Date: 20100827
  Transmission Date: 20110831
  Serious: No
  Sender: FDA-Public Use
  Company Number: US-ALLERGAN-1011121US

PATIENT
  Age: 67 Year
  Sex: Female

DRUGS (3)
  1. RESTASIS [Suspect]
     Indication: DRY EYE
     Dosage: UNK
     Route: 047
     Dates: start: 20100501
  2. OPTIVE [Concomitant]
     Indication: DRY EYE
     Dosage: 1 GTT, BID
     Route: 047
     Dates: start: 20100501
  3. REFRESH CLASSIC [Concomitant]
     Indication: DRY EYE
     Dosage: 1 GTT, QD
     Route: 047
     Dates: start: 20100501

REACTIONS (4)
  - OVERDOSE [None]
  - NASAL CONGESTION [None]
  - EAR DISCOMFORT [None]
  - COUGH [None]
